FAERS Safety Report 24778907 (Version 1)
Quarter: 2024Q4

REPORT INFORMATION
  Report Type: Spontaneous
  Country: US (occurrence: US)
  Receive Date: 20241226
  Receipt Date: 20241226
  Transmission Date: 20250115
  Serious: Yes (Other)
  Sender: MYLAN
  Company Number: US-MYLANLABS-2024M1115045

PATIENT
  Age: 8 Decade
  Sex: Female

DRUGS (14)
  1. PAROXETINE [Suspect]
     Active Substance: PAROXETINE
     Indication: Depression
     Dosage: UNK
     Route: 065
  2. FLUOXETINE [Suspect]
     Active Substance: FLUOXETINE HYDROCHLORIDE
     Indication: Depression
     Dosage: UNK
     Route: 065
  3. SERTRALINE [Suspect]
     Active Substance: SERTRALINE HYDROCHLORIDE
     Indication: Depression
     Dosage: UNK
     Route: 065
  4. ESCITALOPRAM [Suspect]
     Active Substance: ESCITALOPRAM OXALATE
     Indication: Depression
     Dosage: UNK
     Route: 065
  5. VENLAFAXINE [Suspect]
     Active Substance: VENLAFAXINE HYDROCHLORIDE
     Indication: Depression
     Dosage: UNK
     Route: 065
  6. MIRTAZAPINE [Suspect]
     Active Substance: MIRTAZAPINE
     Indication: Depression
     Dosage: 7.5 MILLIGRAM
     Route: 065
  7. MIRTAZAPINE [Suspect]
     Active Substance: MIRTAZAPINE
     Dosage: 15 MILLIGRAM, HS (NIGHTLY)
     Route: 065
  8. BUPROPION [Suspect]
     Active Substance: BUPROPION
     Indication: Depression
     Dosage: UNK
     Route: 065
  9. DULOXETINE [Suspect]
     Active Substance: DULOXETINE
     Indication: Depression
     Dosage: 60 MILLIGRAM
     Route: 065
  10. KETAMINE [Concomitant]
     Active Substance: KETAMINE
     Indication: Depression
     Dosage: 20 MILLIGRAM; ADMINISTERED OVER 40 MINUTES; TWICE PER WEEK
     Route: 042
  11. KETAMINE [Concomitant]
     Active Substance: KETAMINE
     Dosage: 20 MILLIGRAM, QW; ADMINISTERED OVER 40 MINUTES
     Route: 042
  12. KETAMINE [Concomitant]
     Active Substance: KETAMINE
     Dosage: 20 MILLIGRAM; Q10D; ADMINISTERED OVER 40 MINUTES
     Route: 042
  13. KETAMINE [Concomitant]
     Active Substance: KETAMINE
     Dosage: 20 MILLIGRAM, BIWEEKLY; ADMINISTERED OVER 40 MINUTES
     Route: 042
  14. KETAMINE [Concomitant]
     Active Substance: KETAMINE
     Dosage: 20 MILLIGRAM, Q3W; ADMINISTERED OVER 40 MINUTES
     Route: 042

REACTIONS (2)
  - Drug ineffective [Unknown]
  - Drug intolerance [Unknown]
